FAERS Safety Report 23738203 (Version 1)
Quarter: 2024Q2

REPORT INFORMATION
  Report Type: Spontaneous
  Country: CA (occurrence: JP)
  Receive Date: 20240412
  Receipt Date: 20240412
  Transmission Date: 20240716
  Serious: Yes (Hospitalization, Other)
  Sender: FDA-Public Use
  Company Number: CA-HQ SPECIALTY-JP-2024INT000036

PATIENT
  Age: 7 Decade
  Sex: Female

DRUGS (2)
  1. DEXMEDETOMIDINE HYDROCHLORIDE [Suspect]
     Active Substance: DEXMEDETOMIDINE HYDROCHLORIDE
     Indication: Product used for unknown indication
     Dosage: 0.25-1.24 UG/KG/H
  2. DEXMEDETOMIDINE HYDROCHLORIDE [Suspect]
     Active Substance: DEXMEDETOMIDINE HYDROCHLORIDE
     Dosage: 0.8 UG/KG/H

REACTIONS (3)
  - Tremor [Recovered/Resolved]
  - Withdrawal syndrome [Recovered/Resolved]
  - Supraventricular tachycardia [Recovered/Resolved]
